FAERS Safety Report 5928757-9 (Version None)
Quarter: 2008Q4

REPORT INFORMATION
  Report Type: 
  Country: None (occurrence: None)
  Receive Date: 20081024
  Receipt Date: 20081017
  Transmission Date: 20090506
  Serious: Yes (Disabling, Other)
  Sender: FDA-Public Use
  Company Number: GB-RANBAXY-2008RR-18780

PATIENT
  Sex: Male

DRUGS (5)
  1. SIMVASTATIN [Suspect]
     Indication: HYPERCHOLESTEROLAEMIA
     Dosage: 60 MG, UNK
     Dates: start: 20061218, end: 20080731
  2. SIMVASTATIN [Suspect]
     Dosage: 10 MG, UNK
  3. SIMVASTATIN [Suspect]
     Dosage: 20 MG, UNK
  4. SIMVASTATIN [Suspect]
     Dosage: 40 MG, UNK
  5. RAMIPRIL [Concomitant]
     Indication: HYPERTENSION
     Dosage: 5 MG, UNK
     Dates: start: 20070416

REACTIONS (4)
  - BLOOD CREATINE PHOSPHOKINASE INCREASED [None]
  - MUSCULAR WEAKNESS [None]
  - PAIN IN EXTREMITY [None]
  - PERONEAL NERVE PALSY [None]
